FAERS Safety Report 22259460 (Version 1)
Quarter: 2023Q2

REPORT INFORMATION
  Report Type: Spontaneous
  Country: JP (occurrence: JP)
  Receive Date: 20230427
  Receipt Date: 20230427
  Transmission Date: 20230722
  Serious: No
  Sender: FDA-Public Use
  Company Number: JP-GSK-JP2023JPN060009

PATIENT

DRUGS (14)
  1. SOTROVIMAB [Suspect]
     Active Substance: SOTROVIMAB
     Indication: COVID-19
     Dosage: 500 MG
     Route: 042
  2. ISOTONIC SODIUM CHLORIDE SOLUTION [Concomitant]
     Active Substance: SODIUM CHLORIDE
     Dosage: UNK
     Route: 042
  3. SODIUM BICARBONATE [Concomitant]
     Active Substance: SODIUM BICARBONATE
     Dosage: UNK
     Route: 042
  4. INSULIN NOS [Concomitant]
     Active Substance: INSULIN NOS
     Dosage: UNK, A MAXIMUM OF 93 UNITS PER DAY
  5. INSULIN ASPART RECOMBINANT [Concomitant]
     Active Substance: INSULIN ASPART
     Dosage: 90 UNITS PER DAY
  6. INSULIN ASPART RECOMBINANT [Concomitant]
     Active Substance: INSULIN ASPART
     Dosage: 15 UNITS PER DAY, MULTIPLE SUBCUTANEOUS INJECTIONS ADMINISTERED DAILY
  7. INSULIN ASPART RECOMBINANT [Concomitant]
     Active Substance: INSULIN ASPART
     Dosage: 25 UNITS PER DAY, MULTIPLE SUBCUTANEOUS INJECTIONS ADMINISTERED DAILY
  8. INSULIN ASPART RECOMBINANT [Concomitant]
     Active Substance: INSULIN ASPART
     Dosage: 43 UNITS PER DAY, MULTIPLE SUBCUTANEOUS INJECTIONS ADMINISTERED DAILY
  9. INSULIN ASPART RECOMBINANT [Concomitant]
     Active Substance: INSULIN ASPART
     Dosage: 49 UNITS PER DAY, MULTIPLE SUBCUTANEOUS INJECTIONS ADMINISTERED DAILY
  10. INSULIN DEGLUDEC (GENETICAL RECOMBINATION) [Concomitant]
     Dosage: 17 UNITS PER DAY, MULTIPLE SUBCUTANEOUS INJECTIONS ADMINISTERED DAILY
  11. INSULIN DEGLUDEC (GENETICAL RECOMBINATION) [Concomitant]
     Dosage: 20 UNITS PER DAY, , MULTIPLE SUBCUTANEOUS INJECTIONS ADMINISTERED DAILY
  12. INSULIN DEGLUDEC (GENETICAL RECOMBINATION) [Concomitant]
     Dosage: 23 UNITS PER DAY, , MULTIPLE SUBCUTANEOUS INJECTIONS ADMINISTERED DAILY
  13. INSULIN DEGLUDEC (GENETICAL RECOMBINATION) [Concomitant]
     Dosage: 26 UNITS PER DAY, , MULTIPLE SUBCUTANEOUS INJECTIONS ADMINISTERED DAILY
  14. INSULIN DEGLUDEC (GENETICAL RECOMBINATION) [Concomitant]
     Dosage: 30 UNITS PER DAY, , MULTIPLE SUBCUTANEOUS INJECTIONS ADMINISTERED DAILY

REACTIONS (1)
  - Hyperglycaemia [Unknown]
